FAERS Safety Report 8784696 (Version 1)
Quarter: 2012Q4

REPORT INFORMATION
  Report Type: Spontaneous
  Country: US (occurrence: None)
  Receive Date: 20120907
  Receipt Date: 20120907
  Transmission Date: 20130627
  Serious: Yes (Other)
  Sender: FDA-Public Use
  Company Number: None

PATIENT
  Age: 52 Year
  Sex: Female
  Weight: 72.8 kg

DRUGS (2)
  1. DULERA [Suspect]
     Indication: ASTHMA
     Route: 055
     Dates: start: 20120627, end: 20120711
  2. LAMOTRIGINE [Suspect]
     Route: 048
     Dates: start: 20120320

REACTIONS (21)
  - Suicidal ideation [None]
  - Anxiety [None]
  - Fatigue [None]
  - Initial insomnia [None]
  - Nausea [None]
  - Somnolence [None]
  - Dry mouth [None]
  - Oropharyngeal pain [None]
  - Dizziness [None]
  - Nervousness [None]
  - Fatigue [None]
  - Chest pain [None]
  - Headache [None]
  - Pyrexia [None]
  - Palpitations [None]
  - Asthenia [None]
  - Irritability [None]
  - Activities of daily living impaired [None]
  - Asthma [None]
  - Coordination abnormal [None]
  - Joint swelling [None]
